FAERS Safety Report 7677194-8 (Version None)
Quarter: 2011Q3

REPORT INFORMATION
  Report Type: 
  Country: None (occurrence: None)
  Receive Date: 20110811
  Receipt Date: 20110808
  Transmission Date: 20111222
  Serious: Yes (Other)
  Sender: FDA-Public Use
  Company Number: US-ROXANE LABORATORIES, INC.-2011-RO-01124RO

PATIENT
  Age: 15 Year
  Sex: Female

DRUGS (3)
  1. METHOTREXATE [Suspect]
     Indication: BONE SARCOMA
     Dates: end: 19910301
  2. DOXORUBICIN HCL [Suspect]
     Indication: BONE SARCOMA
     Dates: end: 19910301
  3. IFOSFAMIDE [Suspect]
     Indication: BONE SARCOMA
     Dates: end: 19910301

REACTIONS (1)
  - MUCOSAL INFLAMMATION [None]
